FAERS Safety Report 8160457-X (Version None)
Quarter: 2012Q1

REPORT INFORMATION
  Report Type: 
  Country: None (occurrence: None)
  Receive Date: 20120223
  Receipt Date: 20120220
  Transmission Date: 20120608
  Serious: Yes (Hospitalization, Other)
  Sender: FDA-Public Use
  Company Number: US-TEVA-323747USA

PATIENT
  Age: 59 Year
  Sex: Male

DRUGS (5)
  1. PROPAFENONE HCL [Suspect]
     Route: 065
  2. PRADAXA [Suspect]
     Indication: OVERDOSE
     Dosage: 30 X DABIGATRAN ETEXILATE 150MG
     Route: 048
  3. ENALAPRIL MALEATE [Suspect]
     Dosage: UNKNOWN DOSE
     Route: 048
  4. PRAVASTATIN [Concomitant]
     Route: 065
  5. SILDENAFIL [Suspect]
     Indication: OVERDOSE
     Dosage: 6 X SILDENAFIL 100MG
     Route: 048

REACTIONS (4)
  - TOXICITY TO VARIOUS AGENTS [None]
  - SUICIDAL BEHAVIOUR [None]
  - OVERDOSE [None]
  - ELECTROCARDIOGRAM QRS COMPLEX PROLONGED [None]
